FAERS Safety Report 5060843-0 (Version None)
Quarter: 2006Q3

REPORT INFORMATION
  Report Type: 
  Country: None (occurrence: None)
  Receive Date: 20060725
  Receipt Date: 20060706
  Transmission Date: 20061208
  Serious: Yes (Other)
  Sender: FDA-Public Use
  Company Number: JP-JPN-A200602511

PATIENT
  Age: 50 Year
  Sex: Female

DRUGS (8)
  1. PAXIL [Suspect]
     Indication: MAJOR DEPRESSION
     Dosage: 20MG PER DAY
     Route: 048
  2. RISPERIDONE [Concomitant]
     Dosage: 6MG PER DAY
     Route: 065
  3. OLANZAPINE [Concomitant]
     Dosage: 25MG PER DAY
     Route: 065
  4. CHLORPROMAZINE [Concomitant]
     Route: 065
  5. SULPIRIDE [Concomitant]
     Dosage: 150MG PER DAY
     Route: 065
  6. AMOXAPINE [Concomitant]
     Dosage: 225MG PER DAY
     Route: 065
  7. IMIPRAMINE HCL [Concomitant]
     Dosage: 150MG PER DAY
  8. FLUVOXAMINE MALEATE [Concomitant]
     Dosage: 50MG PER DAY
     Route: 065

REACTIONS (4)
  - BLOOD CREATINE PHOSPHOKINASE INCREASED [None]
  - MUSCLE RIGIDITY [None]
  - NEUROLEPTIC MALIGNANT SYNDROME [None]
  - PYREXIA [None]
